FAERS Safety Report 20630054 (Version 1)
Quarter: 2022Q1

REPORT INFORMATION
  Report Type: Spontaneous
  Country: US (occurrence: US)
  Receive Date: 20220324
  Receipt Date: 20220324
  Transmission Date: 20220424
  Serious: No
  Sender: FDA-Public Use
  Company Number: US-GLAXOSMITHKLINE-US2022049307

PATIENT
  Age: 79 Year
  Sex: Male

DRUGS (2)
  1. TRELEGY ELLIPTA [Suspect]
     Active Substance: FLUTICASONE FUROATE\UMECLIDINIUM BROMIDE\VILANTEROL TRIFENATATE
     Indication: Chronic obstructive pulmonary disease
     Dosage: 1 DF, QD,100-62.5MCG INH100USE
     Route: 055
     Dates: start: 202111, end: 202112
  2. BROVANA [Concomitant]
     Active Substance: ARFORMOTEROL TARTRATE
     Indication: Lung neoplasm malignant
     Dosage: 2 DF, BID

REACTIONS (2)
  - Vision blurred [Recovered/Resolved]
  - Palpitations [Recovered/Resolved]

NARRATIVE: CASE EVENT DATE: 20211201
